FAERS Safety Report 4931477-0 (Version None)
Quarter: 2006Q1

REPORT INFORMATION
  Report Type: 
  Country: None (occurrence: None)
  Receive Date: 20060303
  Receipt Date: 20060223
  Transmission Date: 20060701
  Serious: Yes (Hospitalization)
  Sender: FDA-Public Use
  Company Number: DE-JNJFOC-20050302116

PATIENT
  Sex: Female
  Weight: 74 kg

DRUGS (10)
  1. CAELYX [Suspect]
     Route: 042
  2. HERCEPTIN [Concomitant]
     Route: 042
  3. NOVALGINE [Concomitant]
     Route: 048
  4. PASPERTIN [Concomitant]
     Route: 048
  5. SELENIUM SULFIDE [Concomitant]
     Route: 048
  6. ZINK [Concomitant]
     Route: 048
  7. VITAMIN B COMPLEX CAP [Concomitant]
     Route: 048
  8. VITAMIN B COMPLEX CAP [Concomitant]
     Route: 048
  9. VITAMIN B COMPLEX CAP [Concomitant]
     Route: 048
  10. VITAMIN B COMPLEX CAP [Concomitant]
     Route: 048

REACTIONS (4)
  - DRUG ERUPTION [None]
  - HEPATIC ENZYME INCREASED [None]
  - LICHENOID KERATOSIS [None]
  - TRANSAMINASES INCREASED [None]
